FAERS Safety Report 25019638 (Version 1)
Quarter: 2025Q1

REPORT INFORMATION
  Report Type: Spontaneous
  Country: NL (occurrence: NL)
  Receive Date: 20250227
  Receipt Date: 20250227
  Transmission Date: 20250408
  Serious: Yes (Other)
  Sender: DOUGLAS PHARMACEUTICALS
  Company Number: NL-DOUGLAS PHARMACEUTICALS US-2025TSM00015

PATIENT
  Age: 62 Year
  Sex: Male

DRUGS (1)
  1. CLOZAPINE [Suspect]
     Active Substance: CLOZAPINE

REACTIONS (1)
  - Withdrawal catatonia [Recovered/Resolved]
